FAERS Safety Report 6095771-5 (Version None)
Quarter: 2009Q1

REPORT INFORMATION
  Report Type: 
  Country: None (occurrence: None)
  Receive Date: 20090227
  Receipt Date: 20080612
  Transmission Date: 20090719
  Serious: Yes (Hospitalization, Other)
  Sender: FDA-Public Use
  Company Number: A0732684A

PATIENT
  Sex: Female

DRUGS (3)
  1. LAMICTAL [Suspect]
     Indication: BIPOLAR DISORDER
  2. WELLBUTRIN [Concomitant]
  3. TRILEPTAL [Concomitant]

REACTIONS (1)
  - STEVENS-JOHNSON SYNDROME [None]
